FAERS Safety Report 10632642 (Version 1)
Quarter: 2014Q4

REPORT INFORMATION
  Report Type: Spontaneous
  Country: US (occurrence: US)
  Receive Date: 20141205
  Receipt Date: 20141205
  Transmission Date: 20150529
  Serious: No
  Sender: FDA-Public Use
  Company Number: US-BRISTOL-MYERS SQUIBB COMPANY-21170485

PATIENT
  Age: 43 Year
  Sex: Female
  Weight: 80.27 kg

DRUGS (1)
  1. BYETTA [Suspect]
     Active Substance: EXENATIDE
     Indication: TYPE 2 DIABETES MELLITUS
     Dosage: 1DF=5MCG IN MORNING,10MCG IN EVENING
     Dates: start: 2009, end: 201404

REACTIONS (3)
  - Weight increased [Unknown]
  - Weight decreased [Unknown]
  - Blood glucose increased [Unknown]

NARRATIVE: CASE EVENT DATE: 2009
